FAERS Safety Report 9090642 (Version 1)
Quarter: 2013Q1

REPORT INFORMATION
  Report Type: Spontaneous
  Country: US (occurrence: US)
  Receive Date: 20130201
  Receipt Date: 20130201
  Transmission Date: 20140127
  Serious: No
  Sender: FDA-Public Use
  Company Number: US-GALDERMA-US-GDP-12414756

PATIENT
  Sex: Male

DRUGS (2)
  1. EPIDUO [Suspect]
     Indication: PRODUCT USED FOR UNKNOWN INDICATION
     Dosage: UNKNOWN
     Route: 061
  2. CETAPHIL [Suspect]
     Indication: THERAPEUTIC SKIN CARE TOPICAL
     Dosage: UNKNOWN
     Route: 061

REACTIONS (1)
  - Seborrhoea [Not Recovered/Not Resolved]
